FAERS Safety Report 6092680-2 (Version None)
Quarter: 2009Q1

REPORT INFORMATION
  Report Type: 
  Country: None (occurrence: None)
  Receive Date: 20090223
  Receipt Date: 20090223
  Transmission Date: 20090719
  Serious: Yes (Other)
  Sender: FDA-Public Use
  Company Number: None

PATIENT
  Age: 60 Year
  Sex: Female
  Weight: 66.6788 kg

DRUGS (1)
  1. FLUOROURACIL [Suspect]
     Indication: SKIN DISORDER
     Dosage: COVERAGE 2X/DAY CUTANEOUS
     Route: 003
     Dates: start: 20090211, end: 20090218

REACTIONS (4)
  - NAIL DISCOLOURATION [None]
  - NAIL DISORDER [None]
  - ONYCHALGIA [None]
  - PAIN IN EXTREMITY [None]
